FAERS Safety Report 9468706 (Version 3)
Quarter: 2013Q3

REPORT INFORMATION
  Report Type: Spontaneous
  Country: GB (occurrence: GB)
  Receive Date: 20130821
  Receipt Date: 20130828
  Transmission Date: 20140515
  Serious: Yes (Hospitalization)
  Sender: FDA-Public Use
  Company Number: GB-PFIZER INC-2013236473

PATIENT
  Age: 79 Year
  Sex: Female

DRUGS (6)
  1. RAMIPRIL [Suspect]
     Dosage: UNK
     Route: 048
  2. BISOPROLOL FUMARATE [Suspect]
     Dosage: UNK
     Route: 065
  3. ATENOLOL [Concomitant]
     Indication: MYOCARDIAL INFARCTION
     Route: 048
  4. SIMVASTATIN [Concomitant]
     Indication: MYOCARDIAL INFARCTION
     Route: 048
  5. TAMOXIFEN [Concomitant]
     Indication: BREAST CANCER
     Route: 048
  6. ASA [Concomitant]
     Dosage: 75 MG, UNK
     Route: 048

REACTIONS (5)
  - Circulatory collapse [Recovered/Resolved]
  - Hypotension [Recovered/Resolved]
  - Hand fracture [Recovered/Resolved]
  - Fall [Recovered/Resolved]
  - Vomiting [Recovered/Resolved]
